FAERS Safety Report 25330221 (Version 4)
Quarter: 2025Q2

REPORT INFORMATION
  Report Type: Report from Study
  Country: US (occurrence: US)
  Receive Date: 20250519
  Receipt Date: 20250630
  Transmission Date: 20250717
  Serious: No
  Sender: SUNOVION
  Company Number: US-SUMITOMO PHARMA SWITZERLAND GMBH-2025SPA005461

PATIENT

DRUGS (9)
  1. ORGOVYX [Suspect]
     Active Substance: RELUGOLIX
     Indication: Prostate cancer
     Dosage: 360 MG, SINGLE
     Route: 048
     Dates: start: 20250428, end: 20250428
  2. ORGOVYX [Suspect]
     Active Substance: RELUGOLIX
     Dosage: 120 MG, QD
     Route: 048
     Dates: start: 20250429
  3. EQL Vitamin D3 [Concomitant]
     Indication: Product used for unknown indication
     Route: 065
  4. Mucinex Sinus-Max Sev Cong/Pn [Concomitant]
     Indication: Product used for unknown indication
     Route: 065
  5. Robitussin Cough+ Chest  Cong DM [Concomitant]
     Indication: Product used for unknown indication
     Route: 065
  6. ZYRTEC [Concomitant]
     Active Substance: CETIRIZINE HYDROCHLORIDE
     Indication: Product used for unknown indication
     Route: 065
  7. ABIRATERONE ACETATE [Concomitant]
     Active Substance: ABIRATERONE ACETATE
     Route: 065
  8. PREDNISONE [Concomitant]
     Active Substance: PREDNISONE
     Route: 065
  9. ZYTIGA [Concomitant]
     Active Substance: ABIRATERONE ACETATE

REACTIONS (7)
  - Nasopharyngitis [Unknown]
  - Cough [Unknown]
  - Multiple allergies [Unknown]
  - Muscle spasms [Unknown]
  - Headache [Unknown]
  - Constipation [Unknown]
  - Hyperhidrosis [Unknown]
